FAERS Safety Report 9510436 (Version 1)
Quarter: 2013Q3

REPORT INFORMATION
  Report Type: Spontaneous
  Country: US (occurrence: US)
  Receive Date: 20130909
  Receipt Date: 20130909
  Transmission Date: 20140515
  Serious: Yes (Other)
  Sender: FDA-Public Use
  Company Number: US-FRI-1000048420

PATIENT
  Sex: Female

DRUGS (1)
  1. VIIBRYD [Suspect]
     Indication: DEPRESSION

REACTIONS (4)
  - Suicidal ideation [Unknown]
  - Feeling jittery [Unknown]
  - Feeling abnormal [Unknown]
  - Depression [Unknown]
